FAERS Safety Report 5848954-0 (Version None)
Quarter: 2008Q3

REPORT INFORMATION
  Report Type: 
  Country: None (occurrence: None)
  Receive Date: 20080819
  Receipt Date: 20080811
  Transmission Date: 20090109
  Serious: Yes (Other)
  Sender: FDA-Public Use
  Company Number: PHHY2008BE17551

PATIENT
  Age: 58 Year
  Sex: Female

DRUGS (3)
  1. ZOMETA [Suspect]
     Indication: METASTASES TO BONE
     Dosage: 4 MG EVERY 4 WEEKS
     Dates: start: 20040801, end: 20070701
  2. ZOMETA [Suspect]
     Indication: BREAST CANCER
  3. HORMONES NOS [Concomitant]

REACTIONS (2)
  - BONE FISTULA [None]
  - OSTEONECROSIS [None]
